FAERS Safety Report 17792276 (Version 2)
Quarter: 2022Q1

REPORT INFORMATION
  Report Type: Spontaneous
  Country: GR (occurrence: GR)
  Receive Date: 20200515
  Receipt Date: 20220216
  Transmission Date: 20220423
  Serious: Yes (Hospitalization)
  Sender: FDA-Public Use
  Company Number: GR-NOVARTISPH-NVSC2020GR131374

PATIENT
  Age: 72 Year
  Sex: Female

DRUGS (3)
  1. LETROZOLE [Suspect]
     Active Substance: LETROZOLE
     Indication: Product used for unknown indication
     Dosage: 2.5 MG, UNK
     Route: 065
  2. FLUOXETINE [Suspect]
     Active Substance: FLUOXETINE HYDROCHLORIDE
     Indication: Product used for unknown indication
     Dosage: 20 MG, UNK
     Route: 065
  3. ALPRAZOLAM [Suspect]
     Active Substance: ALPRAZOLAM
     Indication: Product used for unknown indication
     Dosage: 2.5 MG, UNK
     Route: 065

REACTIONS (1)
  - Ileus [Unknown]
